FAERS Safety Report 25997904 (Version 1)
Quarter: 2025Q4

REPORT INFORMATION
  Report Type: Spontaneous
  Country: US (occurrence: US)
  Receive Date: 20251105
  Receipt Date: 20251105
  Transmission Date: 20260118
  Serious: No
  Sender: ELI LILLY AND COMPANY
  Company Number: US-ELI_LILLY_AND_COMPANY-US202510026211

PATIENT
  Age: 69 Year

DRUGS (1)
  1. ZEPBOUND [Suspect]
     Active Substance: TIRZEPATIDE
     Indication: Weight control
     Dosage: 12.5 MG, 2/W
     Route: 058

REACTIONS (3)
  - Off label use [Unknown]
  - Dysphonia [Not Recovered/Not Resolved]
  - Eustachian tube patulous [Not Recovered/Not Resolved]
